FAERS Safety Report 25515239 (Version 1)
Quarter: 2025Q3

REPORT INFORMATION
  Report Type: Spontaneous
  Country: US (occurrence: US)
  Receive Date: 20250704
  Receipt Date: 20250704
  Transmission Date: 20251021
  Serious: Yes (Other)
  Sender: MADRIGAL PHARMACEUTICALS
  Company Number: US-MADRIGAL PHARMACEUTICALS, INC-2025REZ7303

PATIENT

DRUGS (2)
  1. REZDIFFRA [Suspect]
     Active Substance: RESMETIROM
     Indication: Metabolic dysfunction-associated steatohepatitis
     Dates: start: 2024
  2. REZDIFFRA [Suspect]
     Active Substance: RESMETIROM

REACTIONS (3)
  - Hepatic enzyme increased [Recovered/Resolved]
  - Nausea [Unknown]
  - Diarrhoea [Unknown]
